FAERS Safety Report 21462334 (Version 1)
Quarter: 2022Q4

REPORT INFORMATION
  Report Type: Spontaneous
  Country: US (occurrence: US)
  Receive Date: 20221016
  Receipt Date: 20221016
  Transmission Date: 20230113
  Serious: No
  Sender: FDA-Public Use
  Company Number: US-009507513-2210USA001548

PATIENT
  Sex: Female

DRUGS (1)
  1. PIFELTRO [Suspect]
     Active Substance: DORAVIRINE
     Indication: Product used for unknown indication
     Dosage: 1 TABLET DAILY
     Route: 048

REACTIONS (1)
  - Nightmare [Unknown]
